FAERS Safety Report 18122664 (Version 1)
Quarter: 2020Q3

REPORT INFORMATION
  Report Type: Spontaneous
  Country: US (occurrence: US)
  Receive Date: 20200806
  Receipt Date: 20200806
  Transmission Date: 20201103
  Serious: Yes (Disabling)
  Sender: FDA-Public Use
  Company Number: None

PATIENT
  Age: 61 Year
  Sex: Female
  Weight: 52.65 kg

DRUGS (4)
  1. PROLIA [Suspect]
     Active Substance: DENOSUMAB
     Indication: OSTEOPOROSIS
     Dosage: ?          QUANTITY:2 INJECTION(S);OTHER FREQUENCY:EVERY 6 MONTHS;?
     Dates: start: 20190815, end: 20200314
  2. VITAMINS [Concomitant]
     Active Substance: VITAMINS
  3. CALCIUM [Concomitant]
     Active Substance: CALCIUM
  4. VITAMIN D [Concomitant]
     Active Substance: VITAMIN D NOS

REACTIONS (6)
  - Bone pain [None]
  - Pain in extremity [None]
  - Back pain [None]
  - Paraesthesia [None]
  - Erythema [None]
  - Vision blurred [None]

NARRATIVE: CASE EVENT DATE: 20200501
